FAERS Safety Report 5819130-2 (Version None)
Quarter: 2008Q3

REPORT INFORMATION
  Report Type: 
  Country: None (occurrence: None)
  Receive Date: 20080723
  Receipt Date: 20080714
  Transmission Date: 20090109
  Serious: Yes (Death, Life-Threatening, Hospitalization)
  Sender: FDA-Public Use
  Company Number: GB-JNJFOC-20071006963

PATIENT
  Age: 35 Year
  Sex: Male
  Weight: 70 kg

DRUGS (12)
  1. TRAMADOL HYDROCHLORIDE [Suspect]
     Indication: DRUG USE FOR UNKNOWN INDICATION
     Route: 048
  2. DIAZEPAM [Suspect]
     Indication: DRUG USE FOR UNKNOWN INDICATION
     Route: 048
  3. FENTANYL-100 [Suspect]
     Indication: PAIN
     Route: 062
  4. TEMAZEPAM [Suspect]
     Indication: DRUG USE FOR UNKNOWN INDICATION
     Route: 048
  5. CYCLIZINE [Concomitant]
     Route: 065
  6. AMOXICILLIN [Concomitant]
     Route: 065
  7. BUSCOPAN [Concomitant]
     Route: 065
  8. CITALOPRAM HYDROBROMIDE [Concomitant]
     Route: 065
  9. OMEPRAZOLE [Concomitant]
     Route: 065
  10. ACETAMINOPHEN [Concomitant]
     Route: 065
  11. TEGRETOL [Concomitant]
     Route: 065
  12. IRON [Concomitant]
     Route: 065

REACTIONS (1)
  - CONFUSIONAL STATE [None]
